FAERS Safety Report 7574620-X (Version None)
Quarter: 2011Q2

REPORT INFORMATION
  Report Type: 
  Country: None (occurrence: None)
  Receive Date: 20110627
  Receipt Date: 20110524
  Transmission Date: 20111010
  Serious: No
  Sender: FDA-Public Use
  Company Number: US-BAYER-2011-045777

PATIENT
  Sex: Male
  Weight: 136 kg

DRUGS (10)
  1. TESTOSTERONE [Concomitant]
  2. OXYCODONE HCL [Concomitant]
  3. PREVACID [Concomitant]
  4. VITAMIN E [Concomitant]
  5. MULTI-VITAMIN [Concomitant]
  6. NUVIGIL [Concomitant]
  7. ALEVE (CAPLET) [Suspect]
     Indication: BACK PAIN
     Dosage: 8 DF, BID
     Route: 048
     Dates: start: 20101101
  8. FLEXERIL [Concomitant]
  9. DEPAKOTE [Concomitant]
  10. TESTIM [Concomitant]

REACTIONS (1)
  - DIZZINESS [None]
